FAERS Safety Report 13905365 (Version 1)
Quarter: 2017Q3

REPORT INFORMATION
  Report Type: Spontaneous
  Country: US (occurrence: None)
  Receive Date: 20170821
  Receipt Date: 20170821
  Transmission Date: 20171127
  Serious: Yes (Hospitalization)
  Sender: FDA-Public Use
  Company Number: None

PATIENT
  Sex: Male
  Weight: 87.8 kg

DRUGS (5)
  1. METHOTREXATE. [Suspect]
     Active Substance: METHOTREXATE
     Dates: end: 20170711
  2. ONCASPAR [Suspect]
     Active Substance: PEGASPARGASE
     Dates: end: 20170707
  3. MERCAPTOPURINE. [Suspect]
     Active Substance: MERCAPTOPURINE
     Dates: end: 20170814
  4. CYTARABINE. [Suspect]
     Active Substance: CYTARABINE
     Dates: end: 20170811
  5. CYCLOPHOSPHAMIDE. [Suspect]
     Active Substance: CYCLOPHOSPHAMIDE
     Dates: end: 20170809

REACTIONS (5)
  - Hypoaesthesia [None]
  - Blood sodium decreased [None]
  - Pain in extremity [None]
  - Neutrophil count decreased [None]
  - Thrombocytopenia [None]

NARRATIVE: CASE EVENT DATE: 20170815
